FAERS Safety Report 7991008-8 (Version None)
Quarter: 2011Q4

REPORT INFORMATION
  Report Type: 
  Country: None (occurrence: None)
  Receive Date: 20111219
  Receipt Date: 20111130
  Transmission Date: 20120403
  Serious: No
  Sender: FDA-Public Use
  Company Number: US-ROXANE LABORATORIES, INC.-2011-RO-01718RO

PATIENT
  Sex: Female

DRUGS (1)
  1. MORPHINE [Suspect]
     Indication: CANCER PAIN
     Route: 048
     Dates: start: 20110701

REACTIONS (1)
  - LIQUID PRODUCT PHYSICAL ISSUE [None]
